FAERS Safety Report 7898169-X (Version None)
Quarter: 2011Q4

REPORT INFORMATION
  Report Type: 
  Country: None (occurrence: None)
  Receive Date: 20111107
  Receipt Date: 20111101
  Transmission Date: 20120403
  Serious: Yes (Life-Threatening, Hospitalization)
  Sender: FDA-Public Use
  Company Number: CA-MERCK-1003USA01749

PATIENT
  Age: 52 Year
  Sex: Male
  Weight: 86 kg

DRUGS (6)
  1. ZETIA [Suspect]
     Route: 048
  2. CLOZAPINE [Concomitant]
     Route: 048
  3. CRESTOR [Suspect]
     Route: 048
  4. FENOFIBRATE [Suspect]
     Route: 048
  5. METFORMIN [Concomitant]
     Route: 048
  6. HALOPERIDOL [Concomitant]
     Route: 048

REACTIONS (6)
  - HEPATIC FAILURE [None]
  - ALANINE AMINOTRANSFERASE INCREASED [None]
  - BLOOD BILIRUBIN INCREASED [None]
  - ASPARTATE AMINOTRANSFERASE INCREASED [None]
  - INTERNATIONAL NORMALISED RATIO INCREASED [None]
  - SHOCK [None]
